FAERS Safety Report 18301027 (Version 2)
Quarter: 2021Q3

REPORT INFORMATION
  Report Type: Spontaneous
  Country: US (occurrence: US)
  Receive Date: 20200923
  Receipt Date: 20210721
  Transmission Date: 20211014
  Serious: Yes (Hospitalization, Other)
  Sender: FDA-Public Use
  Company Number: US-GW PHARMA-202009USGW03155

PATIENT

DRUGS (2)
  1. EPIDIOLEX [Suspect]
     Active Substance: CANNABIDIOL
     Indication: STATUS EPILEPTICUS
     Dosage: DOSE INCREASED
     Route: 048
     Dates: start: 2020
  2. EPIDIOLEX [Suspect]
     Active Substance: CANNABIDIOL
     Indication: LENNOX-GASTAUT SYNDROME
     Dosage: 400 MILLIGRAM, QD (150 MG IN THE MORNING, 100 MG AT MIDDAY AND 150MG IN THE EVENING)
     Route: 048
     Dates: start: 2020, end: 2020

REACTIONS (13)
  - Seizure [Unknown]
  - Foot fracture [Unknown]
  - Facial paralysis [Unknown]
  - Fall [Unknown]
  - Seizure [Recovered/Resolved]
  - Hemiparesis [Unknown]
  - Disorientation [Unknown]
  - Amnesia [Unknown]
  - Joint dislocation [Recovered/Resolved]
  - Joint swelling [Recovered/Resolved]
  - Pain in extremity [Unknown]
  - Off label use [Unknown]
  - Dysarthria [Unknown]

NARRATIVE: CASE EVENT DATE: 2020
